FAERS Safety Report 18615423 (Version 1)
Quarter: 2020Q4

REPORT INFORMATION
  Report Type: Spontaneous
  Country: FR (occurrence: FR)
  Receive Date: 20201215
  Receipt Date: 20201215
  Transmission Date: 20210114
  Serious: Yes (Other)
  Sender: FDA-Public Use
  Company Number: FR-ROCHE-2733167

PATIENT
  Age: 41 Year
  Sex: Female

DRUGS (1)
  1. TECENTRIQ [Suspect]
     Active Substance: ATEZOLIZUMAB
     Indication: OVARIAN EPITHELIAL CANCER
     Dosage: THIS WAS ALSO THE MOST RECENT DOSE OF ATEZOLIZUMAB
     Route: 041
     Dates: start: 20201029

REACTIONS (3)
  - Pancytopenia [Recovering/Resolving]
  - Cholestasis [Recovering/Resolving]
  - Rash [Recovering/Resolving]

NARRATIVE: CASE EVENT DATE: 20201107
